FAERS Safety Report 9963473 (Version 1)
Quarter: 2014Q1

REPORT INFORMATION
  Report Type: Report from Study
  Country: US (occurrence: US)
  Receive Date: 20140305
  Receipt Date: 20140305
  Transmission Date: 20141002
  Serious: No
  Sender: FDA-Public Use
  Company Number: US-ABBVIE-13P-163-1118096-00

PATIENT
  Age: 19 Year
  Sex: Female

DRUGS (4)
  1. HUMIRA [Suspect]
     Indication: COLITIS ULCERATIVE
     Dates: start: 201305
  2. BALSALAZIDE [Concomitant]
     Indication: COLITIS ULCERATIVE
     Dosage: 750MG DAILY
  3. IRON [Concomitant]
     Indication: ANAEMIA
     Dosage: DAILY
  4. ORTHO CYCLEN [Concomitant]
     Indication: CONTRACEPTION
     Dosage: DAILY

REACTIONS (1)
  - Colitis ulcerative [Recovered/Resolved]
